FAERS Safety Report 7355213-6 (Version None)
Quarter: 2011Q1

REPORT INFORMATION
  Report Type: 
  Country: None (occurrence: None)
  Receive Date: 20110316
  Receipt Date: 20110314
  Transmission Date: 20110831
  Serious: Yes (Other)
  Sender: FDA-Public Use
  Company Number: BE-ABBOTT-11P-013-0707846-00

PATIENT
  Age: 2 Year
  Sex: Male

DRUGS (1)
  1. DEPAKENE [Suspect]
     Indication: EPILEPSY
     Dosage: 300 MG/ML DROPS
     Route: 048
     Dates: start: 20100601

REACTIONS (3)
  - DRUG INEFFECTIVE [None]
  - ANTICONVULSANT DRUG LEVEL BELOW THERAPEUTIC [None]
  - EPILEPSY [None]
